FAERS Safety Report 6103649-3 (Version None)
Quarter: 2009Q1

REPORT INFORMATION
  Report Type: 
  Country: None (occurrence: None)
  Receive Date: 20090227
  Receipt Date: 20090216
  Transmission Date: 20090719
  Serious: Yes (Disabling, Other)
  Sender: FDA-Public Use
  Company Number: OSCN-NO-0901S-0026

PATIENT
  Age: 59 Year
  Sex: Female

DRUGS (2)
  1. OMNISCAN [Suspect]
     Indication: DRUG USE FOR UNKNOWN INDICATION
     Dosage: 10 ML, SINGLE DOSE, I.V.
     Route: 042
     Dates: start: 20020115, end: 20020115
  2. MAGNEVIST [Concomitant]

REACTIONS (3)
  - ABDOMINAL PAIN [None]
  - NEPHROGENIC SYSTEMIC FIBROSIS [None]
  - ONYCHOMYCOSIS [None]
